FAERS Safety Report 20730371 (Version 1)
Quarter: 2022Q2

REPORT INFORMATION
  Report Type: Spontaneous
  Country: US (occurrence: US)
  Receive Date: 20220420
  Receipt Date: 20220420
  Transmission Date: 20220721
  Serious: No
  Sender: FDA-Public Use
  Company Number: US-GSKCCFUS-Case-01351627_AE-78336

PATIENT
  Age: 26 Year
  Sex: Female

DRUGS (1)
  1. BENLYSTA [Suspect]
     Active Substance: BELIMUMAB
     Indication: Product used for unknown indication
     Dosage: 200 MG/ML, WE
     Route: 058
     Dates: start: 2022

REACTIONS (5)
  - Injection site haemorrhage [Unknown]
  - Exposure via skin contact [Unknown]
  - Underdose [Unknown]
  - Device use error [Unknown]
  - Accidental exposure to product [Unknown]

NARRATIVE: CASE EVENT DATE: 20220407
